FAERS Safety Report 18623294 (Version 3)
Quarter: 2023Q2

REPORT INFORMATION
  Report Type: Report from Study
  Country: US (occurrence: US)
  Receive Date: 20201216
  Receipt Date: 20230421
  Transmission Date: 20230721
  Serious: Yes (Life-Threatening, Hospitalization)
  Sender: FDA-Public Use
  Company Number: US-ABBVIE-20P-163-3685206-00

PATIENT
  Age: 30 Year
  Sex: Female

DRUGS (18)
  1. UPADACITINIB [Suspect]
     Active Substance: UPADACITINIB
     Indication: Axial spondyloarthritis
     Route: 048
     Dates: start: 20200827, end: 20201202
  2. UPADACITINIB [Suspect]
     Active Substance: UPADACITINIB
     Indication: Axial spondyloarthritis
     Route: 048
     Dates: start: 20201203, end: 20201206
  3. LEVONORGESTREL and ETHINYLESTRADIOL [Concomitant]
     Indication: Contraception
     Dosage: 15MG/30MCG
     Route: 048
     Dates: start: 20190901, end: 20201207
  4. SYNTHROID [Concomitant]
     Active Substance: LEVOTHYROXINE SODIUM
     Indication: Hypothyroidism
     Route: 048
     Dates: start: 20081101
  5. ROBAXIN [Concomitant]
     Active Substance: METHOCARBAMOL
     Indication: Axial spondyloarthritis
     Dosage: TIME INTERVAL: 0.33333333 DAYS: AS NEEDED
     Route: 048
     Dates: start: 20090901
  6. GRALISE [Concomitant]
     Active Substance: GABAPENTIN
     Indication: Axial spondyloarthritis
     Dosage: TIME INTERVAL: 0.16666667 DAYS
     Route: 048
     Dates: start: 20150201
  7. SAVELLA [Concomitant]
     Active Substance: MILNACIPRAN HYDROCHLORIDE
     Indication: Axial spondyloarthritis
     Route: 048
     Dates: start: 20110801
  8. PREDNISONE [Concomitant]
     Active Substance: PREDNISONE
     Indication: Axial spondyloarthritis
     Route: 048
     Dates: start: 20170201
  9. LATUDA [Concomitant]
     Active Substance: LURASIDONE HYDROCHLORIDE
     Indication: Anxiety
     Route: 048
     Dates: start: 20170213
  10. TRINTELLIX [Concomitant]
     Active Substance: VORTIOXETINE HYDROBROMIDE
     Indication: Anxiety
     Route: 048
     Dates: start: 20180301
  11. SINGULAIR [Concomitant]
     Active Substance: MONTELUKAST SODIUM
     Indication: Seasonal allergy
     Route: 048
     Dates: start: 20180616
  12. MECLIZINE [Concomitant]
     Active Substance: MECLIZINE HYDROCHLORIDE
     Indication: Syncope
     Dosage: AS NEEDED
     Route: 048
     Dates: start: 20180301
  13. SALAGEN [Concomitant]
     Active Substance: PILOCARPINE HYDROCHLORIDE
     Indication: Dry mouth
     Route: 048
     Dates: start: 20190301
  14. LOPRESSOR [Concomitant]
     Active Substance: METOPROLOL TARTRATE
     Indication: Tachycardia
     Dosage: HS
     Route: 048
     Dates: start: 20190601
  15. NUVIGIL [Concomitant]
     Active Substance: ARMODAFINIL
     Indication: Fatigue
     Route: 048
     Dates: start: 20170201
  16. ZOFRAN ODT [Concomitant]
     Active Substance: ONDANSETRON HYDROCHLORIDE
     Indication: Irritable bowel syndrome
     Dosage: TIME INTERVAL: 0.33333333 DAYS: AS NEEDED
     Route: 060
     Dates: start: 20090201
  17. VITAMIN D3 [Concomitant]
     Active Substance: CHOLECALCIFEROL
     Indication: Vitamin D deficiency
     Route: 048
     Dates: start: 20190603
  18. ZORVOLEX [Concomitant]
     Active Substance: DICLOFENAC
     Indication: Axial spondyloarthritis
     Route: 048
     Dates: start: 20150401

REACTIONS (1)
  - Pulmonary embolism [Recovered/Resolved]

NARRATIVE: CASE EVENT DATE: 20201207
